FAERS Safety Report 8381051-1 (Version None)
Quarter: 2012Q2

REPORT INFORMATION
  Report Type: 
  Country: None (occurrence: None)
  Receive Date: 20120523
  Receipt Date: 20120521
  Transmission Date: 20120825
  Serious: Yes (Death)
  Sender: FDA-Public Use
  Company Number: VE-PFIZER INC-2012116736

PATIENT
  Age: 83 Year
  Sex: Male

DRUGS (3)
  1. LIPITOR [Suspect]
     Indication: HYPERCHOLESTEROLAEMIA
     Dosage: 80 MG, ONCE DAILY
     Route: 048
  2. ATACAND [Concomitant]
     Indication: HYPERTENSION
     Dosage: 8 MG, ONCE DAILY
     Route: 048
  3. PLAVIX [Concomitant]
     Indication: CARDIAC DISORDER
     Dosage: 75 MG, ONCE DAILY
     Route: 048

REACTIONS (1)
  - CARDIO-RESPIRATORY ARREST [None]
